FAERS Safety Report 5812019-4 (Version None)
Quarter: 2008Q3

REPORT INFORMATION
  Report Type: 
  Country: None (occurrence: None)
  Receive Date: 20080716
  Receipt Date: 20080708
  Transmission Date: 20090109
  Serious: Yes (Other)
  Sender: FDA-Public Use
  Company Number: PHEH2008US06080

PATIENT

DRUGS (1)
  1. TEKTURNA [Suspect]
     Dosage: UNK, UNK

REACTIONS (1)
  - BIOPSY KIDNEY [None]
